FAERS Safety Report 5789435-2 (Version None)
Quarter: 2008Q2

REPORT INFORMATION
  Report Type: 
  Country: None (occurrence: None)
  Receive Date: 20080618
  Receipt Date: 20080228
  Transmission Date: 20081010
  Serious: Yes (Other)
  Sender: FDA-Public Use
  Company Number: 200811306US

PATIENT
  Age: 89 Year
  Sex: Female

DRUGS (8)
  1. LANTUS [Suspect]
     Indication: TYPE 2 DIABETES MELLITUS
     Dosage: INJ
     Dates: start: 20070101
  2. INSULIN LISPRO (HUMALOG /01293501/) [Concomitant]
  3. FUROSEMIDE [Concomitant]
  4. COREG [Concomitant]
  5. ATORVASTATIN CALCIUM, AMLODIPINE BESILATE (CADUET) [Concomitant]
  6. VALSARTAN (DIOVANE) [Concomitant]
  7. OMEPRAZOLE (PRILOSEC /00661201/) [Concomitant]
  8. ERGOCALCIFEROL (VIT D) [Concomitant]

REACTIONS (2)
  - BLOOD GLUCOSE INCREASED [None]
  - HYPOGLYCAEMIA [None]
